FAERS Safety Report 6672317-1 (Version None)
Quarter: 2010Q2

REPORT INFORMATION
  Report Type: 
  Country: None (occurrence: None)
  Receive Date: 20100408
  Receipt Date: 20100329
  Transmission Date: 20101027
  Serious: Yes (Hospitalization, Other)
  Sender: FDA-Public Use
  Company Number: US-ELI_LILLY_AND_COMPANY-US201003008152

PATIENT
  Sex: Female

DRUGS (4)
  1. HUMALOG [Suspect]
     Indication: DIABETES MELLITUS
     Dosage: UNK, AS NEEDED
     Dates: start: 20091201
  2. HUMULIN N [Suspect]
     Indication: DIABETES MELLITUS
     Dosage: 30 U, 4/D
     Dates: end: 20091201
  3. HUMULIN R [Suspect]
     Indication: DIABETES MELLITUS
     Dosage: 25 U, 4/D
     Dates: end: 20091201
  4. LEVEMIR [Concomitant]
     Dosage: 40 U, 2/D

REACTIONS (7)
  - BLINDNESS [None]
  - BLOOD GLUCOSE INCREASED [None]
  - BREAST CANCER [None]
  - CERVIX CARCINOMA [None]
  - DRUG DOSE OMISSION [None]
  - DRUG INEFFECTIVE [None]
  - MYOCARDIAL INFARCTION [None]
